FAERS Safety Report 5810584-4 (Version None)
Quarter: 2008Q3

REPORT INFORMATION
  Report Type: 
  Country: None (occurrence: None)
  Receive Date: 20080715
  Receipt Date: 20080707
  Transmission Date: 20090109
  Serious: Yes (Life-Threatening, Hospitalization)
  Sender: FDA-Public Use
  Company Number: JP-WYE-H04828908

PATIENT
  Sex: Male
  Weight: 75 kg

DRUGS (6)
  1. PIPERACILLIN AND TAZOBACTAM [Suspect]
     Indication: URINARY TRACT INFECTION
     Route: 041
     Dates: start: 20080624, end: 20080624
  2. ASPIRIN [Concomitant]
     Route: 048
  3. PREDONINE [Concomitant]
     Route: 048
  4. SOLITA-T1 [Concomitant]
     Route: 041
     Dates: start: 20080623
  5. MEVALOTIN [Concomitant]
     Route: 048
  6. NORVASC [Concomitant]
     Route: 048

REACTIONS (3)
  - ANAPHYLACTIC SHOCK [None]
  - CHEST PAIN [None]
  - ELECTROCARDIOGRAM ST SEGMENT ELEVATION [None]
